FAERS Safety Report 4543719-4 (Version None)
Quarter: 2004Q4

REPORT INFORMATION
  Report Type: 
  Country: None (occurrence: None)
  Receive Date: 20041229
  Receipt Date: 20041229
  Transmission Date: 20050328
  Serious: Yes (Other)
  Sender: FDA-Public Use
  Company Number: None

PATIENT
  Age: 41 Year
  Sex: Male

DRUGS (1)
  1. GABAPENTIN 400 MG CAP-ALPHALMA [Suspect]
     Dosage: 800 MG BY MOUTH TID

REACTIONS (1)
  - URTICARIA [None]
